FAERS Safety Report 9684460 (Version 4)
Quarter: 2014Q1

REPORT INFORMATION
  Report Type: Spontaneous
  Country: JP (occurrence: JP)
  Receive Date: 20131112
  Receipt Date: 20140204
  Transmission Date: 20141002
  Serious: Yes (Life-Threatening, Hospitalization)
  Sender: FDA-Public Use
  Company Number: JP-009507513-1311JPN003212

PATIENT
  Age: 66 Year
  Sex: Male
  Weight: 73 kg

DRUGS (14)
  1. JANUVIA TABLETS 50MG [Suspect]
     Indication: TYPE 2 DIABETES MELLITUS
     Dosage: 50 MG, QD
     Route: 048
     Dates: start: 20121012, end: 20131016
  2. JANUVIA TABLETS 50MG [Suspect]
     Indication: DIABETES MELLITUS INADEQUATE CONTROL
  3. NOVORAPID [Suspect]
     Indication: TYPE 2 DIABETES MELLITUS
     Dosage: RIGHT BEFORE MEALS, MORNING: 22 UNITS DAYTIME: 0 UNIT NIGHT: 18 UNITS / DAILY DOSE UNKNOWN
     Route: 058
     Dates: start: 20110523
  4. NOVORAPID [Suspect]
     Indication: DIABETES MELLITUS INADEQUATE CONTROL
     Dosage: MORNING: 22 UNITS DAYTIME: 0 UNIT NIGHT: 18 UNITS / DAILY DOSE UNKNOWN
     Route: 058
     Dates: start: 20110523
  5. LANTUS [Suspect]
     Indication: TYPE 2 DIABETES MELLITUS
     Dosage: 24 (UNDER 1000 UNIT), QD
     Route: 058
     Dates: start: 20110523
  6. LANTUS [Suspect]
     Indication: DIABETES MELLITUS INADEQUATE CONTROL
  7. METGLUCO [Suspect]
     Indication: DIABETES MELLITUS INADEQUATE CONTROL
     Dosage: 500 MG, BID
     Route: 048
     Dates: start: 20110523, end: 20131016
  8. LIPITOR [Suspect]
     Indication: DYSLIPIDAEMIA
     Dosage: 10 MG, QD
     Route: 048
     Dates: start: 20080527, end: 20131016
  9. TAKEPRON [Suspect]
     Indication: GASTRITIS
     Dosage: 15 MG, QD
     Route: 048
     Dates: start: 20080527, end: 20131016
  10. TAKEPRON [Suspect]
     Indication: GASTROOESOPHAGEAL REFLUX DISEASE
  11. PLETAAL [Suspect]
     Indication: CEREBRAL INFARCTION
     Dosage: 100 MG, BID
     Route: 048
     Dates: start: 20110523, end: 20131016
  12. CO DIO [Suspect]
     Indication: HYPERTENSION
     Dosage: DAILY DOSE UNKNOWN
     Route: 048
     Dates: start: 20100611, end: 20131016
  13. KINEDAK [Suspect]
     Indication: DIABETIC NEUROPATHY
     Dosage: 50 MG, TID
     Route: 048
     Dates: start: 20110523
  14. METHYCOBAL [Suspect]
     Indication: DIABETIC NEUROPATHY
     Dosage: 500 MICROGRAM, TID
     Route: 048
     Dates: start: 20110523

REACTIONS (2)
  - Interstitial lung disease [Recovering/Resolving]
  - Cataract operation [Unknown]
